FAERS Safety Report 14655280 (Version 1)
Quarter: 2018Q1

REPORT INFORMATION
  Report Type: Spontaneous
  Country: US (occurrence: US)
  Receive Date: 20180319
  Receipt Date: 20180319
  Transmission Date: 20180509
  Serious: Yes (Other)
  Sender: FDA-Public Use
  Company Number: US-GLAXOSMITHKLINE-US2017GSK163145

PATIENT
  Age: 60 Year
  Sex: Male

DRUGS (2)
  1. ROPINIROLE. [Suspect]
     Active Substance: ROPINIROLE
     Indication: POST-ANOXIC MYOCLONUS
     Dosage: UNK
     Route: 065
  2. RISPERIDONE. [Suspect]
     Active Substance: RISPERIDONE
     Indication: POST-ANOXIC MYOCLONUS
     Dosage: UNK

REACTIONS (3)
  - Nausea [Unknown]
  - Hyperkinesia [Unknown]
  - Condition aggravated [Recovering/Resolving]
